FAERS Safety Report 16898461 (Version 2)
Quarter: 2019Q4

REPORT INFORMATION
  Report Type: Report from Study
  Country: None (occurrence: US)
  Receive Date: 20191009
  Receipt Date: 20191118
  Transmission Date: 20200122
  Serious: Yes (Other)
  Sender: FDA-Public Use
  Company Number: US-ABBVIE-19K-163-2852384-00

PATIENT
  Sex: Female

DRUGS (2)
  1. LEFLUNOMIDE. [Suspect]
     Active Substance: LEFLUNOMIDE
     Indication: PRODUCT USED FOR UNKNOWN INDICATION
     Route: 065
  2. HUMIRA [Suspect]
     Active Substance: ADALIMUMAB
     Indication: RHEUMATOID ARTHRITIS
     Route: 058

REACTIONS (12)
  - Gastrointestinal haemorrhage [Recovered/Resolved]
  - Cough [Not Recovered/Not Resolved]
  - Visual impairment [Unknown]
  - Lung operation [Recovering/Resolving]
  - Injection site pain [Recovered/Resolved]
  - Large intestine polyp [Recovered/Resolved]
  - Dyspnoea exertional [Recovering/Resolving]
  - Arthralgia [Unknown]
  - Scar pain [Not Recovered/Not Resolved]
  - Post procedural complication [Unknown]
  - Postoperative adhesion [Recovering/Resolving]
  - Haematochezia [Unknown]

NARRATIVE: CASE EVENT DATE: 2019
